FAERS Safety Report 8238529-0 (Version None)
Quarter: 2012Q1

REPORT INFORMATION
  Report Type: 
  Country: None (occurrence: None)
  Receive Date: 20120327
  Receipt Date: 20120319
  Transmission Date: 20120608
  Serious: Yes (Other)
  Sender: FDA-Public Use
  Company Number: DE-ELI_LILLY_AND_COMPANY-DE201203005405

PATIENT
  Age: 67 Year
  Sex: Male

DRUGS (9)
  1. ASPIRIN [Concomitant]
     Dosage: 100 MG, UNKNOWN
  2. IRBESARTAN [Concomitant]
     Dosage: 12.5 MG, UNKNOWN
  3. IRBESARTAN [Concomitant]
     Dosage: 300 MG, UNKNOWN
  4. AMLODIPINE BESYLATE [Concomitant]
     Dosage: 5 MG, UNKNOWN
  5. TORSEMIDE [Concomitant]
     Dosage: 5 MG, UNKNOWN
  6. BYETTA [Suspect]
     Indication: TYPE 2 DIABETES MELLITUS
     Dosage: 10 UG, UNKNOWN
     Route: 058
     Dates: start: 20110901
  7. METFORMIN HCL [Concomitant]
     Dosage: 850 MG, UNKNOWN
  8. CLOPIDOGREL [Concomitant]
     Dosage: 75 MG, UNKNOWN
  9. METOPROLOL TARTRATE [Concomitant]
     Dosage: 95 MG, UNKNOWN

REACTIONS (2)
  - BLOOD GLUCOSE INCREASED [None]
  - CORONARY ARTERIAL STENT INSERTION [None]
